FAERS Safety Report 21683117 (Version 2)
Quarter: 2022Q4

REPORT INFORMATION
  Report Type: Other
  Country: CA (occurrence: None)
  Receive Date: 20221205
  Receipt Date: 20221206
  Transmission Date: 20230113
  Serious: No
  Sender: FDA-Public Use
  Company Number: CA-ROCHE-3230932

PATIENT
  Age: 54 Year
  Sex: Female

DRUGS (4)
  1. OCREVUS [Suspect]
     Active Substance: OCRELIZUMAB
     Indication: Relapsing-remitting multiple sclerosis
     Dosage: THEN 600 MG EVERY 6 MONTH
     Route: 042
     Dates: start: 20201127
  2. TYLENOL [Concomitant]
     Active Substance: ACETAMINOPHEN
  3. MYRBETRIQ [Concomitant]
     Active Substance: MIRABEGRON
  4. PREGABALIN [Concomitant]
     Active Substance: PREGABALIN

REACTIONS (2)
  - SARS-CoV-2 test positive [Unknown]
  - Muscle spasticity [Unknown]

NARRATIVE: CASE EVENT DATE: 20221127
